FAERS Safety Report 7618768-X (Version None)
Quarter: 2011Q3

REPORT INFORMATION
  Report Type: 
  Country: None (occurrence: None)
  Receive Date: 20110718
  Receipt Date: 20081022
  Transmission Date: 20111222
  Serious: Yes (Other)
  Sender: FDA-Public Use
  Company Number: US-BAYER-200715974NA

PATIENT
  Age: 29 Year
  Sex: Female
  Weight: 85.2 kg

DRUGS (31)
  1. MAGNEVIST [Suspect]
     Indication: ANGIOGRAM
     Dosage: 40 ML (PER MEDICAL RECORDS) AND 20 CC (PER BILLING RECORDS)
     Route: 042
     Dates: start: 20031125, end: 20031125
  2. OMNISCAN [Suspect]
     Indication: NUCLEAR MAGNETIC RESONANCE IMAGING
     Dosage: 50 ML, ONCE
     Route: 042
     Dates: start: 20030326, end: 20030326
  3. PHOSLO [Concomitant]
  4. OMNISCAN [Suspect]
     Indication: ANGIOGRAM
     Dosage: 50 ML, ONCE
     Route: 042
     Dates: start: 20030404, end: 20030404
  5. OPTIMARK [Suspect]
     Indication: NUCLEAR MAGNETIC RESONANCE IMAGING
     Route: 042
     Dates: start: 20000124, end: 20000124
  6. MULTIHANCE [Suspect]
     Indication: NUCLEAR MAGNETIC RESONANCE IMAGING
     Dosage: 20 ML, ONCE
     Route: 042
     Dates: start: 20051111, end: 20051111
  7. METOPROLOL TARTRATE [Concomitant]
  8. OMNISCAN [Suspect]
     Dosage: 50 ML, ONCE
     Dates: start: 20021118, end: 20021118
  9. OPTIMARK [Suspect]
     Route: 042
     Dates: start: 20020104, end: 20020104
  10. OPTIMARK [Suspect]
     Route: 042
     Dates: start: 20020114, end: 20020114
  11. EPOGEN [Concomitant]
  12. CLONIDINE [Concomitant]
  13. OMNISCAN [Suspect]
     Dosage: UNK, ONCE
     Dates: start: 20021127, end: 20021127
  14. OPTIMARK [Suspect]
     Route: 042
     Dates: start: 20020105, end: 20020105
  15. HEPARIN [Concomitant]
  16. NEPHROVITE [VIT C,VIT H,B5,B12,B9,B3,B6,B2,B1 HCL] [Concomitant]
  17. NORVASC [Concomitant]
  18. COUMADIN [Concomitant]
  19. LISINOPRIL [Concomitant]
  20. FUROSEMIDE [Concomitant]
  21. OPTIMARK [Suspect]
     Route: 042
     Dates: start: 20000125, end: 20000125
  22. OPTIMARK [Suspect]
     Route: 042
     Dates: start: 20011219, end: 20011219
  23. OPTIMARK [Suspect]
     Route: 042
     Dates: start: 20021124, end: 20021124
  24. OMNISCAN [Suspect]
     Dosage: 50 ML, ONCE
     Dates: start: 20021208, end: 20021208
  25. OPTIMARK [Suspect]
     Route: 042
     Dates: start: 20011220, end: 20011220
  26. OPTIMARK [Suspect]
     Route: 042
     Dates: start: 20021123, end: 20021123
  27. OMNISCAN [Suspect]
     Dosage: 30 ML, ONCE
     Route: 042
     Dates: start: 20030616, end: 20030616
  28. OPTIMARK [Suspect]
     Route: 042
     Dates: start: 20000126, end: 20000126
  29. OPTIMARK [Suspect]
  30. PLAVIX [Concomitant]
  31. NYSTATIN [Concomitant]

REACTIONS (17)
  - FIBROSIS [None]
  - SCAR [None]
  - SKIN TIGHTNESS [None]
  - SKIN SWELLING [None]
  - ARTHRALGIA [None]
  - GENERAL PHYSICAL HEALTH DETERIORATION [None]
  - SKIN EXFOLIATION [None]
  - NEPHROGENIC SYSTEMIC FIBROSIS [None]
  - PAIN [None]
  - PEAU D'ORANGE [None]
  - MUSCULOSKELETAL STIFFNESS [None]
  - FATIGUE [None]
  - ASTHENIA [None]
  - EMOTIONAL DISTRESS [None]
  - DECREASED ACTIVITY [None]
  - DEPRESSION [None]
  - INJURY [None]
